FAERS Safety Report 8104407-0 (Version None)
Quarter: 2012Q1

REPORT INFORMATION
  Report Type: 
  Country: None (occurrence: None)
  Receive Date: 20120130
  Receipt Date: 20120119
  Transmission Date: 20120608
  Serious: Yes (Hospitalization)
  Sender: FDA-Public Use
  Company Number: US-JNJFOC-20111002995

PATIENT
  Sex: Male
  Weight: 83 kg

DRUGS (15)
  1. XARELTO [Suspect]
     Indication: THROMBOSIS PROPHYLAXIS
     Route: 048
     Dates: start: 20110914
  2. AMINOPHYLLINE [Concomitant]
     Route: 048
  3. LASIX [Concomitant]
     Route: 048
  4. DICYCLOMINE [Concomitant]
     Route: 048
  5. ZOCOR [Concomitant]
     Route: 048
  6. CELEBREX [Concomitant]
     Route: 048
  7. NABUMETONE [Concomitant]
     Route: 048
  8. LEVOTHYROXINE SODIUM [Concomitant]
     Route: 048
  9. IMDUR [Concomitant]
     Route: 048
  10. LISINOPRIL [Concomitant]
     Route: 048
  11. SIMVASTATIN [Concomitant]
     Route: 048
  12. LORAZEPAM [Concomitant]
     Route: 048
  13. METOPROLOL TARTRATE [Concomitant]
     Route: 048
  14. DRONABINOL [Concomitant]
     Route: 048
  15. FOSAMAX [Concomitant]
     Route: 048

REACTIONS (4)
  - ANAEMIA [None]
  - DEEP VEIN THROMBOSIS [None]
  - CREATININE RENAL CLEARANCE DECREASED [None]
  - OESOPHAGITIS [None]
